FAERS Safety Report 8979380 (Version 1)
Quarter: 2012Q4

REPORT INFORMATION
  Report Type: Report from Study
  Country: JP (occurrence: JP)
  Receive Date: 20121221
  Receipt Date: 20121221
  Transmission Date: 20130627
  Serious: Yes (Other)
  Sender: FDA-Public Use
  Company Number: JP-VERTEX PHARMACEUTICAL INC.-AE-2012-005900

PATIENT
  Age: 57 Year
  Sex: Male

DRUGS (13)
  1. VX-950 (TELAPREVIR) [Suspect]
     Indication: CHRONIC HEPATITIS C
     Dosage: 2250 mg, qd
     Route: 048
     Dates: start: 20120301, end: 20120402
  2. VX-950 (TELAPREVIR) [Suspect]
     Dosage: 1500 mg, qd
     Route: 048
     Dates: start: 20120403, end: 20120501
  3. VX-950 (TELAPREVIR) [Suspect]
     Dosage: 750 mg, qd
     Route: 048
     Dates: start: 20120403, end: 20120501
  4. REBETOL [Suspect]
     Indication: CHRONIC HEPATITIS C
     Dosage: 800 mg, qd
     Route: 048
     Dates: start: 20120502, end: 20120522
  5. REBETOL [Suspect]
     Dosage: 600 mg, qd
     Route: 048
     Dates: start: 20120403, end: 20120522
  6. REBETOL [Suspect]
     Dosage: 800 mg, qd
     Route: 048
     Dates: start: 20120523, end: 20120702
  7. REBETOL [Suspect]
     Dosage: 400 mg, qd
     Route: 048
     Dates: start: 20120703, end: 20120813
  8. PEGINTRON [Suspect]
     Indication: CHRONIC HEPATITIS C
     Dosage: 1.5 ?g/kg, qw
     Route: 058
     Dates: start: 20120301, end: 20120807
  9. OLMETEC [Concomitant]
     Dosage: 10 mg, qd
     Route: 048
  10. CONFATANIN [Concomitant]
     Dosage: UNK, prn
     Route: 048
     Dates: start: 20120301
  11. FLOMAX                             /01280302/ [Concomitant]
     Dosage: 300 mg, qd
     Route: 048
     Dates: start: 20120712, end: 20120716
  12. AZUNOL                             /00317302/ [Concomitant]
     Dosage: UNK
     Route: 049
     Dates: start: 20120712, end: 20120716
  13. SP TROCHES [Concomitant]
     Dosage: 0.25 UNK, UNK
     Route: 048
     Dates: start: 20120712, end: 20120716

REACTIONS (3)
  - Macular degeneration [Recovered/Resolved]
  - Haemoglobin decreased [Recovered/Resolved]
  - Hyperuricaemia [Recovered/Resolved]
